FAERS Safety Report 9778382 (Version 1)
Quarter: 2013Q4

REPORT INFORMATION
  Report Type: Spontaneous
  Country: US (occurrence: None)
  Receive Date: 20131220
  Receipt Date: 20131220
  Transmission Date: 20140711
  Serious: Yes (Disabling)
  Sender: FDA-Public Use
  Company Number: None

PATIENT
  Age: 52 Year
  Sex: Male
  Weight: 106.6 kg

DRUGS (1)
  1. RAPAFLO [Suspect]
     Indication: PROSTATOMEGALY
     Dosage: 1 DOSE DAILY
     Route: 048

REACTIONS (1)
  - Dyspnoea [None]
